FAERS Safety Report 8563384-9 (Version None)
Quarter: 2012Q3

REPORT INFORMATION
  Report Type: 
  Country: None (occurrence: None)
  Receive Date: 20120802
  Receipt Date: 20120730
  Transmission Date: 20120928
  Serious: No
  Sender: FDA-Public Use
  Company Number: US-AMGEN-USASP2012047556

PATIENT
  Age: 67 Year
  Sex: Male

DRUGS (4)
  1. METHOTREXATE [Concomitant]
     Dosage: UNK
  2. PLAQUENIL [Concomitant]
     Dosage: 1 MG, UNK
     Dates: start: 20100101
  3. ENBREL [Suspect]
     Indication: RHEUMATOID ARTHRITIS
     Dosage: 50 MG, QWK
     Dates: start: 20030201
  4. ARAVA [Concomitant]
     Dosage: 1 MG, UNK
     Dates: start: 20100101

REACTIONS (11)
  - NERVE COMPRESSION [None]
  - ACCIDENT AT WORK [None]
  - LIVER FUNCTION TEST ABNORMAL [None]
  - RHEUMATOID ARTHRITIS [None]
  - INJECTION SITE PAIN [None]
  - BACK PAIN [None]
  - FOOT FRACTURE [None]
  - EYE INFECTION BACTERIAL [None]
  - EXOSTOSIS [None]
  - INTERVERTEBRAL DISC PROTRUSION [None]
  - HERPES VIRUS INFECTION [None]
